FAERS Safety Report 9252087 (Version 2)
Quarter: 2014Q1

REPORT INFORMATION
  Report Type: Spontaneous
  Country: US (occurrence: None)
  Receive Date: 20130305
  Receipt Date: 20140306
  Transmission Date: 20141002
  Serious: Yes (Other)
  Sender: FDA-Public Use
  Company Number: 163-21880-12091027

PATIENT
  Age: 63 Year
  Sex: Female
  Weight: 88.5 kg

DRUGS (2)
  1. REVLIMID [Suspect]
     Indication: PLASMA CELL MYELOMA
     Dosage: 15 MG, 21 IN 21 D, PO
     Route: 048
     Dates: start: 20111101
  2. SYNTHROD (LEVOTHYROXINE SODIUM) [Concomitant]

REACTIONS (4)
  - Pruritus [None]
  - White blood cell count decreased [None]
  - Neutropenia [None]
  - Dry skin [None]
